FAERS Safety Report 14040298 (Version 1)
Quarter: 2017Q4

REPORT INFORMATION
  Report Type: Spontaneous
  Country: CA (occurrence: CA)
  Receive Date: 20171004
  Receipt Date: 20171004
  Transmission Date: 20180321
  Serious: Yes (Hospitalization)
  Sender: FDA-Public Use
  Company Number: CA-ACTELION-A-US2017-160291

PATIENT
  Age: 53 Year
  Sex: Female

DRUGS (23)
  1. WARFARIN [Concomitant]
     Active Substance: WARFARIN
  2. SYMBICORT [Concomitant]
     Active Substance: BUDESONIDE\FORMOTEROL FUMARATE DIHYDRATE
  3. FUROSEMIDE. [Concomitant]
     Active Substance: FUROSEMIDE
  4. TECTA [Concomitant]
     Active Substance: PANTOPRAZOLE MAGNESIUM
  5. ZOPLICONE [Concomitant]
     Active Substance: ZOPICLONE
  6. DESLORATADINE. [Concomitant]
     Active Substance: DESLORATADINE
  7. DOMPERIDONE [Concomitant]
     Active Substance: DOMPERIDONE
  8. POTASSIUM [Concomitant]
     Active Substance: POTASSIUM
  9. IRON [Concomitant]
     Active Substance: IRON
  10. EZETIMIBE. [Concomitant]
     Active Substance: EZETIMIBE
  11. FOLIC ACID. [Concomitant]
     Active Substance: FOLIC ACID
  12. CYMBALTA [Concomitant]
     Active Substance: DULOXETINE HYDROCHLORIDE
  13. LEFLUNOMIDE. [Concomitant]
     Active Substance: LEFLUNOMIDE
  14. ABILIFY [Concomitant]
     Active Substance: ARIPIPRAZOLE
  15. HYDROMORPHONE [Concomitant]
     Active Substance: HYDROMORPHONE
  16. QUETIAPINE. [Concomitant]
     Active Substance: QUETIAPINE
  17. MELOXICAM. [Concomitant]
     Active Substance: MELOXICAM
  18. ZAROXOLYN [Concomitant]
     Active Substance: METOLAZONE
  19. FENOFIBRATE. [Concomitant]
     Active Substance: FENOFIBRATE
  20. PREGABALIN. [Concomitant]
     Active Substance: PREGABALIN
  21. SINGULAIR [Concomitant]
     Active Substance: MONTELUKAST SODIUM
  22. TRACLEER [Suspect]
     Active Substance: BOSENTAN
     Indication: PULMONARY ARTERIAL HYPERTENSION
     Route: 048
  23. SALBUTAMOL [Concomitant]
     Active Substance: ALBUTEROL

REACTIONS (2)
  - Pancreatitis [Unknown]
  - Abdominal pain upper [Unknown]
